FAERS Safety Report 7621589-5 (Version None)
Quarter: 2011Q3

REPORT INFORMATION
  Report Type: 
  Country: None (occurrence: None)
  Receive Date: 20110719
  Receipt Date: 20110711
  Transmission Date: 20111222
  Serious: Yes (Hospitalization)
  Sender: FDA-Public Use
  Company Number: CA-BAYER-2011-024186

PATIENT
  Age: 64 Year
  Sex: Male
  Weight: 90 kg

DRUGS (3)
  1. CIPROFLOXACIN HCL [Suspect]
     Indication: INFLUENZA LIKE ILLNESS
  2. REMICADE [Suspect]
     Indication: CROHN'S DISEASE
     Dosage: 500 MG, UNK
     Route: 042
     Dates: start: 20100430
  3. ADVAIR DISKUS 100/50 [Suspect]
     Indication: INFLUENZA LIKE ILLNESS

REACTIONS (3)
  - PNEUMONIA [None]
  - HYPERSENSITIVITY [None]
  - ORAL HERPES [None]
